FAERS Safety Report 12136974 (Version 1)
Quarter: 2016Q1

REPORT INFORMATION
  Report Type: Spontaneous
  Country: US (occurrence: US)
  Receive Date: 20160302
  Receipt Date: 20160302
  Transmission Date: 20160526
  Serious: No
  Sender: FDA-Public Use
  Company Number: US-PERRIGO-15US005648

PATIENT
  Sex: Male

DRUGS (1)
  1. GOOD NEIGHBOR PHARMACY ANTI DIARRHEAL [Suspect]
     Active Substance: LOPERAMIDE HYDROCHLORIDE
     Indication: DRUG ABUSE
     Dosage: UNKNOWN, UNKNOWN
     Route: 048
     Dates: start: 201505

REACTIONS (3)
  - Intentional overdose [Unknown]
  - Euphoric mood [Unknown]
  - Off label use [Unknown]

NARRATIVE: CASE EVENT DATE: 201505
